FAERS Safety Report 8838097 (Version 1)
Quarter: 2012Q4

REPORT INFORMATION
  Report Type: 
  Country: JP (occurrence: JP)
  Receive Date: 20121012
  Receipt Date: 20121012
  Transmission Date: 20130627
  Serious: Yes (Other)
  Sender: FDA-Public Use
  Company Number: JP-ASTELLAS-2012JP009443

PATIENT
  Age: 64 Year
  Sex: Female

DRUGS (9)
  1. PROGRAF [Suspect]
     Indication: RHEUMATOID ARTHRITIS
     Dosage: 2.5 mg, Unknown/D
     Route: 065
     Dates: end: 2011
  2. PROGRAF [Suspect]
     Indication: COLITIS ULCERATIVE
     Dosage: 0.5 mg, Unknown/D
     Route: 065
  3. PREDNISOLONE [Concomitant]
     Indication: RHEUMATOID ARTHRITIS
     Dosage: 5 mg, Unknown/D
     Route: 065
  4. PREDNISOLONE [Concomitant]
     Dosage: 30 mg, Unknown/D
     Route: 065
  5. PREDNISOLONE [Concomitant]
     Route: 065
  6. PREDNISOLONE [Concomitant]
     Dosage: 5 mg, Unknown/D
     Route: 065
  7. PREDNISOLONE [Concomitant]
     Route: 065
  8. MESALAZINE [Concomitant]
     Route: 065
  9. GANCICLOVIR [Concomitant]
     Route: 065

REACTIONS (3)
  - Drug ineffective [Unknown]
  - Intentional drug misuse [Unknown]
  - Colitis ulcerative [Unknown]
